FAERS Safety Report 8513899-4 (Version None)
Quarter: 2012Q3

REPORT INFORMATION
  Report Type: 
  Country: None (occurrence: None)
  Receive Date: 20120705
  Receipt Date: 20120618
  Transmission Date: 20120928
  Serious: Yes (Hospitalization, Other)
  Sender: FDA-Public Use
  Company Number: 2012SP027023

PATIENT
  Age: 61 Year
  Sex: Female

DRUGS (11)
  1. PRILOSEC [Concomitant]
  2. MULTI-VITAMIN [Concomitant]
  3. MOTRIN [Concomitant]
  4. RIBAVIRIN [Suspect]
     Indication: HEPATITIS C
     Dosage: 600 MG, BID
     Dates: start: 20120320
  5. PEG-INTRON [Suspect]
     Indication: HEPATITIS C
     Dosage: 0.4 ML, QW
     Dates: start: 20120417
  6. PEG-INTRON [Suspect]
     Indication: HEPATITIS C
     Dosage: 0.4 ML, QW
     Dates: start: 20120320, end: 20120417
  7. CALCIUM [Concomitant]
  8. CLONAZEPAM [Concomitant]
  9. METHADONE HCL [Concomitant]
  10. VICTRELIS [Suspect]
     Indication: HEPATITIS C
     Dosage: UNK
     Dates: start: 20120418, end: 20120420
  11. VITAMIN B-12 [Concomitant]

REACTIONS (23)
  - DIZZINESS [None]
  - BRONCHITIS [None]
  - STREPTOCOCCUS TEST POSITIVE [None]
  - MALAISE [None]
  - HAEMATOCRIT DECREASED [None]
  - BLOOD BICARBONATE INCREASED [None]
  - CRYING [None]
  - HEADACHE [None]
  - DEPRESSION [None]
  - LEUKOPENIA [None]
  - FEBRILE NEUTROPENIA [None]
  - STAPHYLOCOCCUS TEST POSITIVE [None]
  - PLATELET COUNT DECREASED [None]
  - LYMPHOCYTE PERCENTAGE DECREASED [None]
  - CONFUSIONAL STATE [None]
  - NAUSEA [None]
  - EYE PAIN [None]
  - HAEMOGLOBIN DECREASED [None]
  - BLOOD CALCIUM DECREASED [None]
  - KLEBSIELLA TEST POSITIVE [None]
  - RED BLOOD CELL COUNT DECREASED [None]
  - ANXIETY [None]
  - BLOOD ALBUMIN DECREASED [None]
